FAERS Safety Report 4867485-8 (Version None)
Quarter: 2005Q4

REPORT INFORMATION
  Report Type: 
  Country: None (occurrence: None)
  Receive Date: 20051228
  Receipt Date: 20051005
  Transmission Date: 20060501
  Serious: Yes (Hospitalization)
  Sender: FDA-Public Use
  Company Number: US-MERCK-0510USA04725

PATIENT
  Age: 63 Year
  Sex: Male

DRUGS (9)
  1. VIOXX [Suspect]
     Indication: PAIN
     Route: 048
     Dates: start: 19990101, end: 20040101
  2. ALPRAZOLAM [Concomitant]
     Indication: ANXIETY
     Route: 048
  3. AMBIEN [Concomitant]
     Route: 048
  4. OXYCODONE [Concomitant]
     Indication: PAIN
     Route: 065
  5. PROMETHAZINE [Concomitant]
     Indication: NAUSEA
     Route: 065
  6. [THERAPY UNSPECIFIED] [Concomitant]
     Indication: CONSTIPATION PROPHYLAXIS
     Route: 065
  7. METHADONE HCL [Concomitant]
     Indication: PAIN
     Route: 048
  8. PROTONIX [Concomitant]
     Route: 048
  9. DURAGESIC-100 [Concomitant]
     Route: 061

REACTIONS (28)
  - ABDOMINAL PAIN [None]
  - ACUTE MYOCARDIAL INFARCTION [None]
  - ANAEMIA [None]
  - ARTERIOSCLEROSIS CORONARY ARTERY [None]
  - ASTHENIA [None]
  - BRADYCARDIA [None]
  - CARDIOMEGALY [None]
  - CHEST PAIN [None]
  - CHRONIC OBSTRUCTIVE PULMONARY DISEASE [None]
  - CONSTIPATION [None]
  - DRUG WITHDRAWAL SYNDROME [None]
  - FATIGUE [None]
  - GASTROOESOPHAGEAL REFLUX DISEASE [None]
  - HAEMATOCHEZIA [None]
  - HYPOCALCAEMIA [None]
  - HYPONATRAEMIA [None]
  - HYPOPROTEINAEMIA [None]
  - INTESTINAL OBSTRUCTION [None]
  - LOSS OF CONSCIOUSNESS [None]
  - NAUSEA [None]
  - OPEN WOUND [None]
  - PAIN [None]
  - RADIAL NERVE PALSY [None]
  - SKIN INFECTION [None]
  - TACHYCARDIA [None]
  - UPPER RESPIRATORY TRACT INFECTION [None]
  - VOMITING [None]
  - WOUND INFECTION [None]
